FAERS Safety Report 20260857 (Version 2)
Quarter: 2023Q1

REPORT INFORMATION
  Report Type: Spontaneous
  Country: US (occurrence: US)
  Receive Date: 20211230
  Receipt Date: 20230324
  Transmission Date: 20230418
  Serious: Yes (Other)
  Sender: FDA-Public Use
  Company Number: US-COOPERSURGICAL, INC.-US-2021CPS000975

PATIENT
  Sex: Female

DRUGS (1)
  1. PARAGARD T 380A [Suspect]
     Active Substance: COPPER
     Indication: Product used for unknown indication
     Dosage: UNK
     Route: 015
     Dates: start: 2016

REACTIONS (15)
  - Blood copper [Unknown]
  - Suicidal ideation [Unknown]
  - Hallucination [Unknown]
  - Palpitations [Unknown]
  - Mental disorder [Unknown]
  - Dyspnoea [Unknown]
  - Pregnancy with contraceptive device [Unknown]
  - Abortion spontaneous [Unknown]
  - Foreign body in reproductive tract [Not Recovered/Not Resolved]
  - Complication of device removal [None]
  - Device material issue [None]
  - Anxiety [Unknown]
  - Insomnia [Unknown]
  - Cystitis [Unknown]
  - Drug ineffective [Unknown]

NARRATIVE: CASE EVENT DATE: 20210403
